FAERS Safety Report 13663016 (Version 2)
Quarter: 2017Q2

REPORT INFORMATION
  Report Type: Spontaneous
  Country: US (occurrence: US)
  Receive Date: 20170619
  Receipt Date: 20170626
  Transmission Date: 20170830
  Serious: Yes (Other)
  Sender: FDA-Public Use
  Company Number: US-ELI_LILLY_AND_COMPANY-US201705010936

PATIENT
  Age: 58 Year
  Sex: Male
  Weight: 83.9 kg

DRUGS (3)
  1. ADCIRCA [Suspect]
     Active Substance: TADALAFIL
     Indication: PRODUCT USED FOR UNKNOWN INDICATION
     Dosage: UNK, UNKNOWN
     Route: 065
  2. LETAIRIS [Concomitant]
     Active Substance: AMBRISENTAN
     Indication: PRODUCT USED FOR UNKNOWN INDICATION
     Dosage: UNK, UNKNOWN
     Route: 065
  3. TYVASO [Suspect]
     Active Substance: TREPROSTINIL
     Indication: PULMONARY ARTERIAL HYPERTENSION
     Dosage: 0.6 MG/ML 3 - 4  BREATHS, QID
     Route: 055
     Dates: start: 20101008

REACTIONS (4)
  - Haemoptysis [Recovered/Resolved]
  - Dizziness [Unknown]
  - Asthenia [Unknown]
  - Syncope [Unknown]

NARRATIVE: CASE EVENT DATE: 201704
